FAERS Safety Report 23362661 (Version 1)
Quarter: 2024Q1

REPORT INFORMATION
  Report Type: Spontaneous
  Country: US (occurrence: None)
  Receive Date: 20240102
  Receipt Date: 20240102
  Transmission Date: 20240410
  Serious: No
  Sender: FDA-Public Use
  Company Number: None

PATIENT
  Sex: Male

DRUGS (1)
  1. TALTZ [Suspect]
     Active Substance: IXEKIZUMAB
     Indication: Psoriasis
     Dosage: 80MG EVERY 2 WEEKS SQ?
     Route: 058
     Dates: start: 202208

REACTIONS (3)
  - Drug ineffective [None]
  - Pruritus [None]
  - Skin burning sensation [None]
